FAERS Safety Report 20024114 (Version 3)
Quarter: 2021Q4

REPORT INFORMATION
  Report Type: Report from Study
  Country: IT (occurrence: IT)
  Receive Date: 20211102
  Receipt Date: 20211220
  Transmission Date: 20220303
  Serious: Yes (Other)
  Sender: FDA-Public Use
  Company Number: IT-GLAXOSMITHKLINE-IT2021EME223993

PATIENT
  Age: 67 Year
  Sex: Female

DRUGS (3)
  1. NIRAPARIB [Suspect]
     Active Substance: NIRAPARIB
     Indication: Ovarian cancer
     Dosage: UNK
     Route: 048
  2. CARBOPLATIN [Concomitant]
     Active Substance: CARBOPLATIN
     Dosage: 5 CYCLES
  3. TAXOL [Concomitant]
     Active Substance: PACLITAXEL
     Dosage: 5 CYCELS

REACTIONS (3)
  - Disease progression [Recovered/Resolved]
  - Pelvic mass [Recovered/Resolved]
  - Abdominal lymphadenopathy [Recovered/Resolved]

NARRATIVE: CASE EVENT DATE: 20211015
